FAERS Safety Report 13578078 (Version 7)
Quarter: 2018Q1

REPORT INFORMATION
  Report Type: Spontaneous
  Country: US (occurrence: US)
  Receive Date: 20170524
  Receipt Date: 20180131
  Transmission Date: 20180508
  Serious: Yes (Hospitalization)
  Sender: FDA-Public Use
  Company Number: US-ACTELION-A-NJ2017-154244

PATIENT
  Age: 56 Year
  Sex: Female

DRUGS (18)
  1. LASIX [Concomitant]
     Active Substance: FUROSEMIDE
  2. TRACLEER [Suspect]
     Active Substance: BOSENTAN
     Indication: PULMONARY ARTERIAL HYPERTENSION
     Dosage: 125 MG, BID
     Route: 048
     Dates: start: 20160826
  3. KCL [Concomitant]
     Active Substance: POTASSIUM CHLORIDE
  4. OXYCODONE [Concomitant]
     Active Substance: OXYCODONE
  5. UPTRAVI [Suspect]
     Active Substance: SELEXIPAG
     Indication: PULMONARY ARTERIAL HYPERTENSION
     Dosage: 1600 MCG, BID
     Route: 048
  6. PROMETHAZINE [Concomitant]
     Active Substance: PROMETHAZINE\PROMETHAZINE HYDROCHLORIDE
  7. XANAX [Concomitant]
     Active Substance: ALPRAZOLAM
  8. PROVENTIL [Concomitant]
     Active Substance: ALBUTEROL
  9. AMBIEN [Concomitant]
     Active Substance: ZOLPIDEM TARTRATE
  10. NEUROTIN [Concomitant]
     Active Substance: GABAPENTIN
  11. COUMADIN [Concomitant]
     Active Substance: WARFARIN SODIUM
  12. LOVASTIN [Concomitant]
     Active Substance: LOVASTATIN
  13. LEXAPRO [Concomitant]
     Active Substance: ESCITALOPRAM OXALATE
  14. TOPAMAX [Concomitant]
     Active Substance: TOPIRAMATE
  15. PROCARDIA [Concomitant]
     Active Substance: NIFEDIPINE
  16. OMEPRAZOLE. [Concomitant]
     Active Substance: OMEPRAZOLE
  17. ADVAIR HFA [Concomitant]
     Active Substance: FLUTICASONE PROPIONATE\SALMETEROL XINAFOATE
  18. MORPHINE [Concomitant]
     Active Substance: MORPHINE

REACTIONS (5)
  - Cystitis [Unknown]
  - Malaise [Unknown]
  - Chromaturia [Unknown]
  - Dyspnoea [Unknown]
  - Lower respiratory tract infection [Not Recovered/Not Resolved]

NARRATIVE: CASE EVENT DATE: 201712
